FAERS Safety Report 6691804-3 (Version None)
Quarter: 2010Q2

REPORT INFORMATION
  Report Type: 
  Country: None (occurrence: None)
  Receive Date: 20100422
  Receipt Date: 20091005
  Transmission Date: 20101027
  Serious: No
  Sender: FDA-Public Use
  Company Number: US-ASTRAZENECA-2009SE18009

PATIENT
  Age: 60 Year
  Sex: Female

DRUGS (11)
  1. TOPROL-XL [Suspect]
     Route: 048
     Dates: start: 20070101, end: 20090901
  2. TOPROL-XL [Suspect]
     Route: 048
     Dates: start: 20090901
  3. LEXAPRO [Suspect]
     Indication: ANXIETY
     Route: 048
     Dates: start: 20070101, end: 20090823
  4. LEXAPRO [Suspect]
     Route: 048
     Dates: start: 20090824, end: 20090828
  5. LEXAPRO [Suspect]
     Route: 048
     Dates: start: 20090829
  6. XANAX [Concomitant]
     Indication: ANXIETY
  7. METFORMIN HCL [Concomitant]
     Indication: DIABETES MELLITUS
  8. PRILOSEC [Concomitant]
     Indication: GASTROOESOPHAGEAL REFLUX DISEASE
  9. EVISTA [Concomitant]
     Indication: PROPHYLAXIS
  10. UNITHROID [Concomitant]
     Indication: HYPOTHYROIDISM
  11. VITAMINS NOS [Concomitant]

REACTIONS (2)
  - TREMOR [None]
  - VASODILATION PROCEDURE [None]
